FAERS Safety Report 18118298 (Version 2)
Quarter: 2021Q1

REPORT INFORMATION
  Report Type: Spontaneous
  Country: US (occurrence: US)
  Receive Date: 20200806
  Receipt Date: 20210310
  Transmission Date: 20210419
  Serious: Yes (Other)
  Sender: FDA-Public Use
  Company Number: US-SA-2020SA203822

PATIENT
  Age: 69 Year
  Sex: Female

DRUGS (1)
  1. ZANTAC [Suspect]
     Active Substance: RANITIDINE HYDROCHLORIDE
     Indication: DYSPEPSIA
     Dosage: 75 MG, QW
     Dates: start: 199601, end: 201909

REACTIONS (1)
  - Gastric cancer stage II [Recovering/Resolving]

NARRATIVE: CASE EVENT DATE: 20190924
